FAERS Safety Report 8485462-5 (Version None)
Quarter: 2012Q3

REPORT INFORMATION
  Report Type: 
  Country: None (occurrence: None)
  Receive Date: 20120703
  Receipt Date: 20120625
  Transmission Date: 20120928
  Serious: Yes (Other)
  Sender: FDA-Public Use
  Company Number: US-ROCHE-1080362

PATIENT
  Sex: Female
  Weight: 68.09 kg

DRUGS (9)
  1. AVASTIN [Suspect]
     Indication: GLIOBLASTOMA
     Route: 042
     Dates: start: 20111209, end: 20120503
  2. PANOBINOSTAT [Suspect]
     Indication: GLIOBLASTOMA
     Route: 048
     Dates: start: 20111209, end: 20120427
  3. KEPPRA [Concomitant]
  4. HUMULIN R [Concomitant]
     Dosage: 20 UNITS EVERY MORNING AND 10 UNITS EVERY EVENING
  5. SYNTHROID [Concomitant]
  6. ZOCOR [Concomitant]
  7. PRILOSEC [Concomitant]
  8. FISH OIL [Concomitant]
  9. DECADRON [Concomitant]

REACTIONS (2)
  - COUGH [None]
  - RHINITIS ALLERGIC [None]
